FAERS Safety Report 13512588 (Version 1)
Quarter: 2017Q2

REPORT INFORMATION
  Report Type: Spontaneous
  Country: US (occurrence: US)
  Receive Date: 20170504
  Receipt Date: 20170504
  Transmission Date: 20170830
  Serious: No
  Sender: FDA-Public Use
  Company Number: None

PATIENT
  Age: 78 Year
  Sex: Female
  Weight: 65.83 kg

DRUGS (21)
  1. AMITIZA [Suspect]
     Active Substance: LUBIPROSTONE
     Indication: CONSTIPATION
     Dosage: ?          QUANTITY:L) 0,4 SULE? ^?FLIT/981ML;?
     Route: 048
     Dates: start: 20170408, end: 20170408
  2. PREDNISONE. [Concomitant]
     Active Substance: PREDNISONE
  3. WHOLE WHEAT BREAD [Concomitant]
  4. VITAMIN B12 [Concomitant]
     Active Substance: CYANOCOBALAMIN
  5. HYDROCHLOROTHIAZIDE. [Concomitant]
     Active Substance: HYDROCHLOROTHIAZIDE
  6. PANTOPRAZOLE [Concomitant]
     Active Substance: PANTOPRAZOLE
  7. VITAMIN D3 [Concomitant]
     Active Substance: CHOLECALCIFEROL
  8. ORENCIA [Concomitant]
     Active Substance: ABATACEPT
  9. PROLIA [Concomitant]
     Active Substance: DENOSUMAB
  10. FOLIC ACID. [Concomitant]
     Active Substance: FOLIC ACID
  11. METHOTREXATE. [Concomitant]
     Active Substance: METHOTREXATE
  12. HYDROCODON/ACETAMINOPHN [Concomitant]
     Active Substance: ACETAMINOPHEN\HYDROCODONE
  13. MILK OF MAG. [Concomitant]
  14. IRBESARTAN. [Concomitant]
     Active Substance: IRBESARTAN
  15. CRESTOR [Concomitant]
     Active Substance: ROSUVASTATIN CALCIUM
  16. MIRALAX [Concomitant]
     Active Substance: POLYETHYLENE GLYCOL 3350
  17. CHIA SEEDS ON FOOD [Concomitant]
  18. ZETIA [Concomitant]
     Active Substance: EZETIMIBE
  19. ALIGN [Concomitant]
     Active Substance: BIFIDOBACTERIUM LONGUM SUBSP. INFANTIS
  20. FLAX SEEDS [Concomitant]
     Active Substance: FLAX SEEDS
  21. DILTIAZEM. [Concomitant]
     Active Substance: DILTIAZEM

REACTIONS (7)
  - Haematochezia [None]
  - Gastric disorder [None]
  - Hyperhidrosis [None]
  - Dizziness [None]
  - Haemorrhoids [None]
  - Nausea [None]
  - Asthenia [None]

NARRATIVE: CASE EVENT DATE: 20170408
